FAERS Safety Report 15426455 (Version 1)
Quarter: 2018Q3

REPORT INFORMATION
  Report Type: Report from Study
  Country: IT (occurrence: IT)
  Receive Date: 20180925
  Receipt Date: 20180925
  Transmission Date: 20181010
  Serious: Yes (Other)
  Sender: FDA-Public Use
  Company Number: IT-PFIZER INC-2018383822

PATIENT
  Age: 44 Year
  Sex: Female

DRUGS (1)
  1. TORVAST [Suspect]
     Active Substance: ATORVASTATIN
     Dosage: UNK

REACTIONS (2)
  - Pruritus [Unknown]
  - Skin reaction [Unknown]

NARRATIVE: CASE EVENT DATE: 20180822
